FAERS Safety Report 6052762-8 (Version None)
Quarter: 2009Q1

REPORT INFORMATION
  Report Type: 
  Country: None (occurrence: None)
  Receive Date: 20090127
  Receipt Date: 20090114
  Transmission Date: 20090719
  Serious: Yes (Hospitalization)
  Sender: FDA-Public Use
  Company Number: ES-SANOFI-SYNTHELABO-A01200900394

PATIENT
  Age: 72 Year
  Sex: Male

DRUGS (3)
  1. FLUTAMIDE [Concomitant]
     Dosage: UNK
     Dates: start: 20080616, end: 20080809
  2. VALSARTAN AND HYDROCHLOROTHIAZIDE [Suspect]
     Indication: HYPERTENSION
     Dosage: 160 MG
     Route: 048
     Dates: start: 20080501, end: 20081024
  3. ELIGARD [Suspect]
     Indication: PROSTATE CANCER
     Dosage: ONCE EVERY 6 MONTHS 45 MG
     Route: 058
     Dates: start: 20080731, end: 20080731

REACTIONS (2)
  - HEPATITIS [None]
  - HYPERBILIRUBINAEMIA [None]
